FAERS Safety Report 9835566 (Version 1)
Quarter: 2014Q1

REPORT INFORMATION
  Report Type: Spontaneous
  Country: US (occurrence: US)
  Receive Date: 20140122
  Receipt Date: 20140122
  Transmission Date: 20141002
  Serious: Yes (Other)
  Sender: FDA-Public Use
  Company Number: US-ACTAVIS-2014-00427

PATIENT
  Age: 67 Year
  Sex: Male

DRUGS (12)
  1. SERTRALINE HYDROCHLORIDE (WATSON LABORATORIES) [Suspect]
     Indication: ANTIDEPRESSANT THERAPY
     Dosage: 50 MG, QAM
     Route: 065
  2. SERTRALINE HYDROCHLORIDE (WATSON LABORATORIES) [Interacting]
     Dosage: 75 MG, DAILY
     Route: 065
  3. SERTRALINE HYDROCHLORIDE (WATSON LABORATORIES) [Interacting]
     Dosage: 25 MG, QAM
     Route: 065
  4. SERTRALINE HYDROCHLORIDE (WATSON LABORATORIES) [Interacting]
     Dosage: UNK
  5. DULOXETINE HYDROCHLORIDE (AELLC) [Interacting]
     Indication: ANTIDEPRESSANT THERAPY
     Dosage: 60 MG, QHS
     Route: 065
  6. ROSUVASTATIN (UNKNOWN) [Suspect]
     Indication: PRODUCT USED FOR UNKNOWN INDICATION
     Dosage: 40 MG, DAILY
     Route: 065
  7. AMLODIPINE (UNKNOWN) [Suspect]
     Indication: PRODUCT USED FOR UNKNOWN INDICATION
     Dosage: 10 MG, DAILY
     Route: 065
  8. ALPRAZOLAM [Concomitant]
     Indication: PRODUCT USED FOR UNKNOWN INDICATION
     Dosage: 0.25 MG, BID, AS NEEDED
     Route: 065
  9. METOPROLOL [Concomitant]
     Indication: PRODUCT USED FOR UNKNOWN INDICATION
     Dosage: 50 MG, DAILY
     Route: 065
  10. HYDROCHLOROTHIAZIDE W/TRIAMTERENE [Concomitant]
     Indication: PRODUCT USED FOR UNKNOWN INDICATION
     Dosage: 25/37.5 MG, DAILY
     Route: 065
  11. METFORMIN [Concomitant]
     Indication: PRODUCT USED FOR UNKNOWN INDICATION
     Dosage: 500 MG, DAILY
     Route: 065
  12. SITAGLIPTIN [Concomitant]
     Indication: PRODUCT USED FOR UNKNOWN INDICATION
     Dosage: 100 MG, DAILY

REACTIONS (7)
  - Hypogonadism [Unknown]
  - Gynaecomastia [Recovered/Resolved]
  - Drug interaction [Recovered/Resolved]
  - Blood glucose increased [None]
  - Blood potassium decreased [None]
  - Glycosylated haemoglobin increased [None]
  - Breast tenderness [None]
